FAERS Safety Report 13764928 (Version 1)
Quarter: 2017Q3

REPORT INFORMATION
  Report Type: Spontaneous
  Country: US (occurrence: US)
  Receive Date: 20170718
  Receipt Date: 20170718
  Transmission Date: 20171127
  Serious: No
  Sender: FDA-Public Use
  Company Number: US-PFIZER INC-2017305669

PATIENT
  Age: 62 Year
  Sex: Female

DRUGS (1)
  1. GABAPENTIN. [Suspect]
     Active Substance: GABAPENTIN
     Dosage: 600 MG, 3X/DAY
     Route: 048

REACTIONS (13)
  - Arthralgia [Unknown]
  - Myalgia [Unknown]
  - Nodal osteoarthritis [Unknown]
  - Joint stiffness [Unknown]
  - Joint lock [Unknown]
  - Sciatica [Unknown]
  - Dysphagia [Unknown]
  - Joint swelling [Unknown]
  - Muscle spasms [Unknown]
  - Dry skin [Unknown]
  - Dry eye [Unknown]
  - Dry mouth [Unknown]
  - Synovitis [Unknown]
